FAERS Safety Report 15061875 (Version 1)
Quarter: 2018Q2

REPORT INFORMATION
  Report Type: Spontaneous
  Country: ZA (occurrence: ZA)
  Receive Date: 20180625
  Receipt Date: 20180625
  Transmission Date: 20180711
  Serious: Yes (Other)
  Sender: FDA-Public Use
  Company Number: ZA-MYLANLABS-2018M1043660

PATIENT
  Age: 36 Year
  Sex: Female

DRUGS (2)
  1. REMIFENTANIL MYLAN [Suspect]
     Active Substance: REMIFENTANIL
     Dosage: 6 MG/ML, UNK
  2. REMIFENTANIL MYLAN [Suspect]
     Active Substance: REMIFENTANIL
     Indication: ANAESTHESIA
     Dosage: 8 MG/ML, UNK

REACTIONS (2)
  - Agitation [Unknown]
  - Drug ineffective [Unknown]
